FAERS Safety Report 17306719 (Version 1)
Quarter: 2020Q1

REPORT INFORMATION
  Report Type: Report from Study
  Country: CA (occurrence: CA)
  Receive Date: 20200123
  Receipt Date: 20200123
  Transmission Date: 20200409
  Serious: Yes (Other)
  Sender: FDA-Public Use
  Company Number: CA-ROCHE-2524080

PATIENT

DRUGS (6)
  1. DIAZEPAM. [Suspect]
     Active Substance: DIAZEPAM
     Indication: ANAESTHESIA
     Route: 065
  2. NITROUS OXIDE. [Concomitant]
     Active Substance: NITROUS OXIDE
  3. HALOTHANE. [Concomitant]
     Active Substance: HALOTHANE
  4. ATROPINE. [Concomitant]
     Active Substance: ATROPINE
     Indication: ANAESTHESIA
     Route: 042
  5. DIAZEPAM. [Suspect]
     Active Substance: DIAZEPAM
     Route: 042
  6. DIAZEPAM. [Suspect]
     Active Substance: DIAZEPAM
     Route: 065

REACTIONS (3)
  - Bradycardia [Unknown]
  - Tachycardia [Unknown]
  - Thrombosis [Unknown]
